FAERS Safety Report 7478972-0 (Version None)
Quarter: 2011Q2

REPORT INFORMATION
  Report Type: 
  Country: None (occurrence: None)
  Receive Date: 20110513
  Receipt Date: 20110504
  Transmission Date: 20111010
  Serious: Yes (Hospitalization, Other)
  Sender: FDA-Public Use
  Company Number: PHHY2011NO24084

PATIENT
  Sex: Female

DRUGS (2)
  1. RITALIN [Suspect]
     Indication: ATTENTION DEFICIT/HYPERACTIVITY DISORDER
     Dosage: 50 MG, QD
     Dates: start: 20090901
  2. CONCERTA [Suspect]
     Indication: ATTENTION DEFICIT/HYPERACTIVITY DISORDER
     Dosage: 72 MG, QD

REACTIONS (6)
  - HAEMATEMESIS [None]
  - ATTENTION DEFICIT/HYPERACTIVITY DISORDER [None]
  - PLEURAL EFFUSION [None]
  - ABSCESS [None]
  - HAEMATURIA [None]
  - MENTAL DISORDER [None]
